FAERS Safety Report 15310951 (Version 2)
Quarter: 2022Q3

REPORT INFORMATION
  Report Type: Spontaneous
  Country: US (occurrence: US)
  Receive Date: 20180823
  Receipt Date: 20220817
  Transmission Date: 20221027
  Serious: Yes (Hospitalization, Other)
  Sender: FDA-Public Use
  Company Number: US-BRISTOL-MYERS SQUIBB COMPANY-BMS-2018-076825

PATIENT
  Age: 65 Year
  Sex: Female

DRUGS (25)
  1. HYDREA [Suspect]
     Active Substance: HYDROXYUREA
     Indication: Product used for unknown indication
     Dosage: 500 MG, QD ?MONDAY, WEDNESDAY AND FRIDAY
     Route: 048
  2. HYDREA [Suspect]
     Active Substance: HYDROXYUREA
     Indication: Product used for unknown indication
     Dosage: 3 IN 1 WEEK
     Route: 048
  3. JAKAFI [Suspect]
     Active Substance: RUXOLITINIB
     Indication: Polycythaemia vera
     Dosage: 15 MG, BID
     Route: 048
     Dates: start: 20170927
  4. JAKAFI [Suspect]
     Active Substance: RUXOLITINIB
     Dosage: 10 MG, BID
     Route: 048
  5. JAKAFI [Suspect]
     Active Substance: RUXOLITINIB
     Dosage: 20 MG, BID
     Route: 048
     Dates: start: 2018
  6. JAKAFI [Suspect]
     Active Substance: RUXOLITINIB
     Dosage: 15 MG, BID
     Route: 048
     Dates: start: 2018, end: 20180702
  7. JAKAFI [Suspect]
     Active Substance: RUXOLITINIB
     Dosage: 15 MG, BID
     Route: 065
     Dates: end: 20180702
  8. JAKAFI [Suspect]
     Active Substance: RUXOLITINIB
     Dosage: 15 MG, QD
     Route: 048
     Dates: start: 20190611
  9. JAKAFI [Suspect]
     Active Substance: RUXOLITINIB
     Route: 048
     Dates: start: 20170811, end: 20210923
  10. JAKAFI [Suspect]
     Active Substance: RUXOLITINIB
     Route: 048
     Dates: start: 201708
  11. JAKAFI [Suspect]
     Active Substance: RUXOLITINIB
     Route: 048
  12. JAKAFI [Suspect]
     Active Substance: RUXOLITINIB
     Route: 048
  13. JAKAFI [Suspect]
     Active Substance: RUXOLITINIB
     Route: 048
  14. JAKAFI [Suspect]
     Active Substance: RUXOLITINIB
     Route: 048
  15. EFFEXOR [Concomitant]
     Active Substance: VENLAFAXINE HYDROCHLORIDE
     Indication: Product used for unknown indication
     Route: 065
  16. WELLBUTRIN [Concomitant]
     Active Substance: BUPROPION HYDROCHLORIDE
     Indication: Product used for unknown indication
     Route: 065
  17. VITAMINS NOS [Concomitant]
     Active Substance: VITAMINS
     Indication: Product used for unknown indication
     Route: 065
  18. CALCIUM + MAGNESIUM + ZINK [Concomitant]
     Indication: Product used for unknown indication
     Route: 065
  19. ASPIRIN [Concomitant]
     Active Substance: ASPIRIN
     Indication: Product used for unknown indication
     Route: 065
  20. CALCIUM CARBONATE\CHOLECALCIFEROL [Concomitant]
     Active Substance: CALCIUM CARBONATE\CHOLECALCIFEROL
     Indication: Product used for unknown indication
     Route: 065
  21. CALCIUM MAGNESIUM +VITAMIN D3 [Concomitant]
  22. MATURE MULTIVITAMINS [Concomitant]
  23. LATANOPROST [Concomitant]
     Active Substance: LATANOPROST
  24. GINGER [Concomitant]
     Active Substance: GINGER
  25. CALCIUM [Concomitant]
     Active Substance: CALCIUM

REACTIONS (19)
  - Platelet count increased [Unknown]
  - Vomiting [Unknown]
  - Abdominal discomfort [Unknown]
  - Fatigue [Not Recovered/Not Resolved]
  - Nausea [Recovered/Resolved]
  - Anaemia [Unknown]
  - Rash [Unknown]
  - Paranasal sinus hypersecretion [Unknown]
  - Coordination abnormal [Unknown]
  - Hypersomnia [Not Recovered/Not Resolved]
  - Memory impairment [Not Recovered/Not Resolved]
  - Decreased appetite [Unknown]
  - Cholelithiasis [Unknown]
  - Feeling abnormal [Unknown]
  - Dehydration [Unknown]
  - Asthenia [Unknown]
  - Aneurysm ruptured [Unknown]
  - Haematocrit increased [Unknown]
  - COVID-19 [Recovered/Resolved]

NARRATIVE: CASE EVENT DATE: 20210801
